FAERS Safety Report 5920621-4 (Version None)
Quarter: 2008Q4

REPORT INFORMATION
  Report Type: 
  Country: None (occurrence: None)
  Receive Date: 20081016
  Receipt Date: 20081009
  Transmission Date: 20090506
  Serious: Yes (Disabling)
  Sender: FDA-Public Use
  Company Number: PHHO2008DE07835

PATIENT
  Sex: Female
  Weight: 65 kg

DRUGS (4)
  1. ZOLEDRONATE T29581+SOLINJ+BM [Suspect]
     Indication: METASTASES TO BONE
     Dosage: 4MG
     Route: 042
     Dates: start: 20070319, end: 20080414
  2. FEMARA [Concomitant]
  3. CALCIUM [Concomitant]
  4. VITAMIN D [Concomitant]

REACTIONS (5)
  - IMPLANT SITE INFLAMMATION [None]
  - MEDICAL DEVICE REMOVAL [None]
  - OSTEONECROSIS [None]
  - SEQUESTRECTOMY [None]
  - TOOTH EXTRACTION [None]
